FAERS Safety Report 7531590-8 (Version None)
Quarter: 2011Q2

REPORT INFORMATION
  Report Type: 
  Country: None (occurrence: None)
  Receive Date: 20110607
  Receipt Date: 20110607
  Transmission Date: 20111010
  Serious: Yes (Other)
  Sender: FDA-Public Use
  Company Number: None

PATIENT

DRUGS (1)
  1. HEPARIN SODIUM INJECTION [Suspect]

REACTIONS (2)
  - BURKHOLDERIA CEPACIA COMPLEX INFECTION [None]
  - PRODUCT CONTAMINATION MICROBIAL [None]
